FAERS Safety Report 4944119-5 (Version None)
Quarter: 2006Q1

REPORT INFORMATION
  Report Type: 
  Country: None (occurrence: None)
  Receive Date: 20060309
  Receipt Date: 20060224
  Transmission Date: 20060701
  Serious: Yes (Other)
  Sender: FDA-Public Use
  Company Number: HQWYE098002MAR06

PATIENT
  Sex: Female
  Weight: 99.88 kg

DRUGS (4)
  1. PREMPRO [Suspect]
     Indication: HOT FLUSH
     Dosage: 0.625MG, ORAL
     Route: 048
     Dates: start: 20021001, end: 20060203
  2. NIASPAN [Suspect]
  3. ATENOLOL [Concomitant]
  4. CAPTOPRIL [Concomitant]

REACTIONS (3)
  - ALANINE AMINOTRANSFERASE INCREASED [None]
  - ASPARTATE AMINOTRANSFERASE INCREASED [None]
  - PRURITUS [None]
